FAERS Safety Report 10071353 (Version 1)
Quarter: 2014Q2

REPORT INFORMATION
  Report Type: Spontaneous
  Country: US (occurrence: US)
  Receive Date: 20140410
  Receipt Date: 20140410
  Transmission Date: 20141212
  Serious: Yes (Other)
  Sender: FDA-Public Use
  Company Number: US-ACTAVIS-2014-06663

PATIENT
  Age: 54 Year
  Sex: Male

DRUGS (2)
  1. SERTRALINE HYDROCHLORIDE (WATSON LABORATORIES) [Suspect]
     Indication: PRODUCT USED FOR UNKNOWN INDICATION
     Dosage: UNK
     Route: 065
  2. COUMADIN                           /00014802/ [Concomitant]
     Indication: PRODUCT USED FOR UNKNOWN INDICATION
     Dosage: UNK
     Route: 065

REACTIONS (3)
  - Rash erythematous [Recovered/Resolved]
  - Dermatitis [Recovered/Resolved]
  - Lymphocytic infiltration [Recovered/Resolved]
